FAERS Safety Report 5364518-X (Version None)
Quarter: 2007Q2

REPORT INFORMATION
  Report Type: 
  Country: None (occurrence: None)
  Receive Date: 20070530
  Receipt Date: 20070117
  Transmission Date: 20071010
  Serious: No
  Sender: FDA-Public Use
  Company Number: 2007PV028584

PATIENT
  Age: 65 Year
  Sex: Female
  Weight: 60.782 kg

DRUGS (4)
  1. BYETTA [Suspect]
     Indication: DIABETES MELLITUS NON-INSULIN-DEPENDENT
     Dosage: 5;10;5 MCG;BID;SC
     Route: 058
     Dates: start: 20060407, end: 20060101
  2. BYETTA [Suspect]
     Indication: DIABETES MELLITUS NON-INSULIN-DEPENDENT
     Dosage: 5;10;5 MCG;BID;SC
     Route: 058
     Dates: end: 20070110
  3. METFORMIN HCL [Concomitant]
  4. LANTUS [Concomitant]

REACTIONS (6)
  - ANTI-THYROID ANTIBODY [None]
  - CONTUSION [None]
  - DECREASED APPETITE [None]
  - SCRATCH [None]
  - URTICARIA LOCALISED [None]
  - WEIGHT DECREASED [None]
